FAERS Safety Report 13473531 (Version 2)
Quarter: 2017Q3

REPORT INFORMATION
  Report Type: Spontaneous
  Country: US (occurrence: US)
  Receive Date: 20170424
  Receipt Date: 20170721
  Transmission Date: 20171127
  Serious: Yes (Hospitalization)
  Sender: FDA-Public Use
  Company Number: US-ELI_LILLY_AND_COMPANY-US201704006388

PATIENT
  Age: 53 Year
  Sex: Female

DRUGS (3)
  1. COZAAR [Concomitant]
     Active Substance: LOSARTAN POTASSIUM
     Indication: HYPERTENSION
  2. HUMALOG KWIKPEN [Suspect]
     Active Substance: INSULIN LISPRO
     Indication: TYPE 2 DIABETES MELLITUS
     Dosage: PRN, TID
     Route: 058
     Dates: start: 20160310
  3. HUMALOG KWIKPEN [Suspect]
     Active Substance: INSULIN LISPRO
     Dosage: PRN, TID
     Route: 058

REACTIONS (6)
  - Cholecystitis [Recovered/Resolved]
  - Blood glucose increased [Recovering/Resolving]
  - Diabetic ketoacidosis [Recovered/Resolved]
  - Deep vein thrombosis [Recovering/Resolving]
  - Obstructive pancreatitis [Recovered/Resolved]
  - Pulmonary embolism [Recovering/Resolving]

NARRATIVE: CASE EVENT DATE: 20160317
